FAERS Safety Report 24003930 (Version 1)
Quarter: 2024Q2

REPORT INFORMATION
  Report Type: Report from Study
  Country: DE (occurrence: DE)
  Receive Date: 20240624
  Receipt Date: 20240624
  Transmission Date: 20240716
  Serious: Yes (Death, Hospitalization)
  Sender: FDA-Public Use
  Company Number: DE-ROCHE-10000000960

PATIENT

DRUGS (14)
  1. RITUXIMAB [Suspect]
     Active Substance: RITUXIMAB
     Indication: Immunosuppressant drug therapy
     Route: 065
  2. OBINUTUZUMAB [Suspect]
     Active Substance: OBINUTUZUMAB
     Indication: Immunosuppressant drug therapy
     Route: 065
  3. MYCOPHENOLATE MOFETIL [Suspect]
     Active Substance: MYCOPHENOLATE MOFETIL
     Indication: Immunosuppressant drug therapy
     Route: 065
  4. AZATHIOPRINE [Suspect]
     Active Substance: AZATHIOPRINE
     Indication: Immunosuppressant drug therapy
     Route: 065
  5. SILTUXIMAB [Suspect]
     Active Substance: SILTUXIMAB
     Indication: Immunosuppressant drug therapy
     Route: 065
  6. CYCLOPHOSPHAMIDE [Suspect]
     Active Substance: CYCLOPHOSPHAMIDE
     Indication: Immunosuppressant drug therapy
     Route: 065
  7. ANAKINRA [Suspect]
     Active Substance: ANAKINRA
     Indication: Immunosuppressant drug therapy
     Route: 065
  8. HYDROXYCHLOROQUINE [Suspect]
     Active Substance: HYDROXYCHLOROQUINE
     Indication: Immunosuppressant drug therapy
     Route: 065
  9. METHOTREXATE [Suspect]
     Active Substance: METHOTREXATE
     Indication: Immunosuppressant drug therapy
     Route: 065
  10. IBRUTINIB [Suspect]
     Active Substance: IBRUTINIB
     Indication: Immunosuppressant drug therapy
     Route: 065
  11. RUXOLITINIB [Suspect]
     Active Substance: RUXOLITINIB
     Indication: Immunosuppressant drug therapy
     Route: 065
  12. TACROLIMUS [Suspect]
     Active Substance: TACROLIMUS
     Indication: Immunosuppressant drug therapy
     Route: 065
  13. CYCLOSPORINE [Suspect]
     Active Substance: CYCLOSPORINE
     Indication: Immunosuppressant drug therapy
     Route: 065
  14. EVEROLIMUS [Suspect]
     Active Substance: EVEROLIMUS
     Indication: Immunosuppressant drug therapy
     Route: 065

REACTIONS (5)
  - COVID-19 pneumonia [Unknown]
  - Superinfection bacterial [Fatal]
  - Sepsis [Fatal]
  - Pneumonia [Unknown]
  - COVID-19 [Fatal]
